FAERS Safety Report 12634791 (Version 1)
Quarter: 2016Q3

REPORT INFORMATION
  Report Type: Spontaneous
  Country: US (occurrence: US)
  Receive Date: 20160808
  Receipt Date: 20160808
  Transmission Date: 20161109
  Serious: Yes (Other)
  Sender: FDA-Public Use
  Company Number: US-INTERNATIONAL MEDICATION SYSTEMS, LIMITED-1055965

PATIENT
  Age: 49 Year
  Sex: Female
  Weight: 100 kg

DRUGS (1)
  1. PHYTONADIONE. [Suspect]
     Active Substance: PHYTONADIONE

REACTIONS (1)
  - Injury associated with device [Unknown]

NARRATIVE: CASE EVENT DATE: 20160521
